FAERS Safety Report 7515258-X (Version None)
Quarter: 2011Q2

REPORT INFORMATION
  Report Type: 
  Country: None (occurrence: None)
  Receive Date: 20110601
  Receipt Date: 20100524
  Transmission Date: 20111010
  Serious: Yes (Other)
  Sender: FDA-Public Use
  Company Number: US-PFIZER INC-2010040040

PATIENT
  Sex: Female
  Weight: 125 kg

DRUGS (7)
  1. CELEBREX [Concomitant]
     Indication: ARTHRALGIA
     Dosage: UNK
  2. DARVOCET [Concomitant]
     Indication: ARTHRALGIA
     Dosage: UNK
  3. CHANTIX [Suspect]
     Indication: SMOKING CESSATION THERAPY
     Dosage: 0.5 MG, 1X/DAY
     Route: 048
     Dates: start: 20100315, end: 20100301
  4. CHANTIX [Suspect]
     Dosage: 0.5 MG, 2X/DAY
     Route: 048
     Dates: start: 20100301, end: 20100101
  5. TRICOR [Concomitant]
     Indication: BLOOD TRIGLYCERIDES INCREASED
     Dosage: UNK
  6. DARVOCET [Concomitant]
     Indication: BACK PAIN
  7. CELEBREX [Concomitant]
     Indication: BACK PAIN

REACTIONS (1)
  - HYPERTENSION [None]
